FAERS Safety Report 13347356 (Version 1)
Quarter: 2017Q1

REPORT INFORMATION
  Report Type: Spontaneous
  Country: CA (occurrence: CA)
  Receive Date: 20170317
  Receipt Date: 20170317
  Transmission Date: 20170428
  Serious: Yes (Life-Threatening, Hospitalization, Other)
  Sender: FDA-Public Use
  Company Number: CA-SHIRE-CA201705819

PATIENT
  Age: 11 Year
  Sex: Male

DRUGS (2)
  1. INTUNIV [Suspect]
     Active Substance: GUANFACINE HYDROCHLORIDE
     Indication: DISTURBANCE IN SOCIAL BEHAVIOUR
     Dosage: 4 MG, 1X/DAY:QD
     Route: 048
  2. CONCERTA [Suspect]
     Active Substance: METHYLPHENIDATE HYDROCHLORIDE
     Indication: ATTENTION DEFICIT/HYPERACTIVITY DISORDER
     Dosage: 72 MG, 1X/DAY:QD
     Route: 048

REACTIONS (6)
  - Product use issue [Unknown]
  - Seizure [Unknown]
  - Hypertensive encephalopathy [Unknown]
  - Drug dose titration not performed [Unknown]
  - Hypertensive crisis [Unknown]
  - Brain oedema [Unknown]
